FAERS Safety Report 17730389 (Version 10)
Quarter: 2021Q1

REPORT INFORMATION
  Report Type: Report from Study
  Country: CL (occurrence: CL)
  Receive Date: 20200430
  Receipt Date: 20210308
  Transmission Date: 20210419
  Serious: Yes (Hospitalization, Other)
  Sender: FDA-Public Use
  Company Number: PHHY2019CL210984

PATIENT
  Age: 66 Year
  Sex: Female

DRUGS (6)
  1. KISQALI [Suspect]
     Active Substance: RIBOCICLIB
     Dosage: 600 MG, QD
     Route: 048
     Dates: start: 20190614
  2. KISQALI [Suspect]
     Active Substance: RIBOCICLIB
     Indication: BREAST CANCER
     Dosage: 200 MG
     Route: 048
     Dates: start: 20190614
  3. KISQALI [Suspect]
     Active Substance: RIBOCICLIB
     Dosage: 600 MG, QD
     Route: 048
     Dates: start: 20190614
  4. KISQALI [Suspect]
     Active Substance: RIBOCICLIB
     Dosage: 600 MG
     Route: 048
     Dates: start: 20190712
  5. LETROZOLE. [Suspect]
     Active Substance: LETROZOLE
     Indication: PRODUCT USED FOR UNKNOWN INDICATION
     Dosage: 1 DF, QD
     Route: 048
  6. OSTEOKER [Concomitant]
     Indication: PRODUCT USED FOR UNKNOWN INDICATION
     Dosage: UNK, Q3MO (ROUTE: ENDOVENOUS)
     Route: 065

REACTIONS (21)
  - Red cell distribution width increased [Unknown]
  - White blood cell count decreased [Unknown]
  - Sinus bradycardia [Unknown]
  - Aspartate aminotransferase increased [Unknown]
  - Red blood cell sedimentation rate increased [Unknown]
  - Lymphocyte count decreased [Unknown]
  - Mental disorder [Unknown]
  - Neutrophil count decreased [Unknown]
  - Neutropenia [Unknown]
  - Anisocytosis [Unknown]
  - Macrocytosis [Unknown]
  - Malaise [Unknown]
  - Decreased immune responsiveness [Unknown]
  - Incorrect dose administered [Unknown]
  - Sinus arrhythmia [Unknown]
  - Mean cell volume increased [Unknown]
  - Alanine aminotransferase increased [Unknown]
  - Mean cell haemoglobin [Unknown]
  - Monocyte count increased [Unknown]
  - Electrolyte imbalance [Unknown]
  - Blood cholesterol increased [Unknown]

NARRATIVE: CASE EVENT DATE: 20190912
